FAERS Safety Report 8133796-6 (Version None)
Quarter: 2012Q1

REPORT INFORMATION
  Report Type: 
  Country: None (occurrence: None)
  Receive Date: 20120213
  Receipt Date: 20120213
  Transmission Date: 20120608
  Serious: Yes (Life-Threatening)
  Sender: FDA-Public Use
  Company Number: None

PATIENT
  Age: 49 Year
  Sex: Female

DRUGS (2)
  1. HYDROCODONE BITARTRATE AND ACETAMINOPHEN [Suspect]
     Indication: NEURALGIA
     Dosage: TAKE 1 TAB 4 TIMES PER DAY
     Route: 048
     Dates: start: 20120202, end: 20120206
  2. HYDROCODONE BITARTRATE AND ACETAMINOPHEN [Suspect]
     Indication: NERVE INJURY
     Dosage: TAKE 1 TAB 4 TIMES PER DAY
     Route: 048
     Dates: start: 20120202, end: 20120206

REACTIONS (7)
  - DRUG INEFFECTIVE [None]
  - PRODUCT SUBSTITUTION ISSUE [None]
  - BLOOD PRESSURE SYSTOLIC INCREASED [None]
  - PRODUCT QUALITY ISSUE [None]
  - CONDITION AGGRAVATED [None]
  - CANCER PAIN [None]
  - PALPITATIONS [None]
